FAERS Safety Report 5366361-4 (Version None)
Quarter: 2007Q2

REPORT INFORMATION
  Report Type: 
  Country: None (occurrence: None)
  Receive Date: 20070622
  Receipt Date: 20070613
  Transmission Date: 20071010
  Serious: Yes (Other)
  Sender: FDA-Public Use
  Company Number: GB-JNJFOC-20070603196

PATIENT
  Sex: Male
  Weight: 119 kg

DRUGS (8)
  1. REMICADE [Suspect]
     Indication: RHEUMATOID ARTHRITIS
     Route: 042
  2. SULFASALAZINE [Concomitant]
  3. METHOTREXATE [Concomitant]
  4. PREDNISOLONE [Concomitant]
  5. CALCICHEW [Concomitant]
  6. DICLOFENAC [Concomitant]
  7. FOLIC ACID [Concomitant]
  8. HYDROXYCHLOROQUINE SULFATE [Concomitant]

REACTIONS (2)
  - DEEP VEIN THROMBOSIS [None]
  - SYNOVIAL CYST [None]
